FAERS Safety Report 10877875 (Version 2)
Quarter: 2015Q1

REPORT INFORMATION
  Report Type: Report from Study
  Country: NL (occurrence: NL)
  Receive Date: 20150302
  Receipt Date: 20150331
  Transmission Date: 20150721
  Serious: Yes (Other)
  Sender: FDA-Public Use
  Company Number: PHHO2015NL002861

PATIENT
  Age: 57 Year
  Sex: Female
  Weight: 72 kg

DRUGS (7)
  1. FTY [Suspect]
     Active Substance: FINGOLIMOD HYDROCHLORIDE
     Indication: MULTIPLE SCLEROSIS
     Dosage: 0.5 MG, QD
     Route: 048
     Dates: start: 20130904, end: 20141218
  2. FOSAMAX [Concomitant]
     Active Substance: ALENDRONATE SODIUM
     Indication: OSTEOPOROSIS PROPHYLAXIS
     Dosage: 70 MG, QW
     Route: 048
     Dates: start: 20100712
  3. NITROFURANTOINE [Concomitant]
     Indication: PROPHYLAXIS
     Dosage: 100 MG, QD
     Route: 048
     Dates: start: 20120726
  4. LIORESAL [Concomitant]
     Active Substance: BACLOFEN
     Indication: MUSCLE SPASMS
     Dosage: 10 MG, BID
     Route: 048
     Dates: start: 20100902
  5. OMNIC [Concomitant]
     Active Substance: TAMSULOSIN HYDROCHLORIDE
     Indication: BLADDER DISORDER
     Dosage: 0.4 MG, QD
     Route: 048
     Dates: start: 20081114
  6. LIQUID NITROGEN [Concomitant]
     Active Substance: NITROGEN
     Indication: SEBORRHOEIC KERATOSIS
     Dosage: 1 APPLICATION
     Route: 065
     Dates: start: 20150122
  7. DRIDASE [Concomitant]
     Indication: BLADDER DYSFUNCTION
     Dosage: 10 MG, QD
     Route: 048
     Dates: start: 20121212

REACTIONS (1)
  - Basal cell carcinoma [Recovered/Resolved]

NARRATIVE: CASE EVENT DATE: 20150122
